FAERS Safety Report 4479418-7 (Version None)
Quarter: 2004Q4

REPORT INFORMATION
  Report Type: 
  Country: None (occurrence: None)
  Receive Date: 20041015
  Receipt Date: 20041001
  Transmission Date: 20050328
  Serious: Yes (Hospitalization)
  Sender: FDA-Public Use
  Company Number: 2004-0007605

PATIENT
  Age: 36 Year
  Sex: Male

DRUGS (5)
  1. VIREAD [Suspect]
     Indication: HIV INFECTION
     Dates: start: 20040101, end: 20040701
  2. SULPHAMETHOXAZOLE+TRIMETHOPRIM (BACTRIM) [Suspect]
  3. DIDANOSINE [Concomitant]
  4. EFAVIRENZ (EFAVIRENZ) [Concomitant]
  5. OPIATES (OPIOIDS) [Concomitant]

REACTIONS (11)
  - COMA [None]
  - DYSPHONIA [None]
  - DYSPNOEA [None]
  - FACE OEDEMA [None]
  - OVERDOSE [None]
  - PANCYTOPENIA [None]
  - PNEUMONIA [None]
  - PNEUMONIA ASPIRATION [None]
  - RENAL FAILURE ACUTE [None]
  - RENAL TUBULAR DISORDER [None]
  - RESPIRATORY ARREST [None]
